FAERS Safety Report 8190367-3 (Version None)
Quarter: 2012Q1

REPORT INFORMATION
  Report Type: 
  Country: None (occurrence: None)
  Receive Date: 20120307
  Receipt Date: 20120229
  Transmission Date: 20120608
  Serious: Yes (Hospitalization)
  Sender: FDA-Public Use
  Company Number: BR-PFIZER INC-2012054071

PATIENT
  Age: 55 Year
  Sex: Male

DRUGS (4)
  1. XALATAN [Suspect]
     Dosage: ONE DROP IN EACH EYE, 1X/DAY
     Route: 047
     Dates: start: 20070101
  2. COSOPT [Concomitant]
     Dosage: UNK
     Dates: start: 20070228
  3. XALATAN [Suspect]
     Dosage: ONE GTT IN LEFT EYE DAILY AND TWO GTT IN RIGHT EYE DAILY
     Dates: start: 20120101
  4. ALPHAGAN [Concomitant]
     Dosage: UNK
     Dates: start: 20070209

REACTIONS (1)
  - EYE DISORDER [None]
